FAERS Safety Report 23124896 (Version 1)
Quarter: 2023Q4

REPORT INFORMATION
  Report Type: Spontaneous
  Country: CN (occurrence: CN)
  Receive Date: 20231030
  Receipt Date: 20231030
  Transmission Date: 20240110
  Serious: Yes (Hospitalization)
  Sender: FDA-Public Use
  Company Number: CN-FreseniusKabi-FK202317012

PATIENT
  Age: 59 Year
  Sex: Female
  Weight: 55 kg

DRUGS (1)
  1. LACTULOSE [Suspect]
     Active Substance: LACTULOSE
     Indication: Defaecation disorder
     Route: 048
     Dates: start: 20231010, end: 20231011

REACTIONS (6)
  - Nausea [Recovered/Resolved]
  - Vomiting [Recovered/Resolved]
  - Hyperhidrosis [Unknown]
  - Asthenia [Unknown]
  - Dizziness [Unknown]
  - Palpitations [Unknown]

NARRATIVE: CASE EVENT DATE: 20231011
